FAERS Safety Report 23331213 (Version 2)
Quarter: 2024Q1

REPORT INFORMATION
  Report Type: Spontaneous
  Country: US (occurrence: None)
  Receive Date: 20231222
  Receipt Date: 20240216
  Transmission Date: 20240410
  Serious: Yes (Hospitalization)
  Sender: FDA-Public Use
  Company Number: 2023A284634

PATIENT
  Age: 71 Year
  Sex: Male

DRUGS (4)
  1. SYMBICORT [Suspect]
     Active Substance: BUDESONIDE\FORMOTEROL FUMARATE DIHYDRATE
     Dosage: 160/4.5 UG, UNKNOWN DOSE AND FREQUENCY UNKNOWN
     Route: 055
  2. SYMBICORT [Suspect]
     Active Substance: BUDESONIDE\FORMOTEROL FUMARATE DIHYDRATE
     Dosage: 160/4.5 UG, UNKNOWN DOSE AND FREQUENCY UNKNOWN
     Route: 055
     Dates: start: 2013
  3. ALBUTEROL [Concomitant]
     Active Substance: ALBUTEROL
  4. LEVOBUPIVACAINE [Concomitant]
     Active Substance: LEVOBUPIVACAINE

REACTIONS (4)
  - COVID-19 [Unknown]
  - Pneumonia [Unknown]
  - Atrial fibrillation [Unknown]
  - Device delivery system issue [Unknown]

NARRATIVE: CASE EVENT DATE: 20230101
